FAERS Safety Report 21784487 (Version 4)
Quarter: 2023Q1

REPORT INFORMATION
  Report Type: Spontaneous
  Country: US (occurrence: US)
  Receive Date: 20221227
  Receipt Date: 20230103
  Transmission Date: 20230418
  Serious: Yes (Other)
  Sender: FDA-Public Use
  Company Number: US-PFIZER INC-202201384474

PATIENT
  Sex: Male

DRUGS (6)
  1. BRAFTOVI [Suspect]
     Active Substance: ENCORAFENIB
     Indication: Thyroid cancer
     Dosage: 4 DF, 1X/DAY
  2. BRAFTOVI [Suspect]
     Active Substance: ENCORAFENIB
     Indication: Lung neoplasm malignant
     Dosage: 1 DF (ONE BRAFTOVI)
  3. BRAFTOVI [Suspect]
     Active Substance: ENCORAFENIB
     Dosage: 2 DF, 1X/DAY (LAST COUPLE OF NIGHTS I TOOK 2 BRAFTOVI)
     Dates: start: 2022
  4. MEKTOVI [Suspect]
     Active Substance: BINIMETINIB
     Indication: Thyroid cancer
     Dosage: 2 DF, 1X/DAY
  5. MEKTOVI [Suspect]
     Active Substance: BINIMETINIB
     Indication: Lung neoplasm malignant
     Dosage: 1 DF (ONE MEKTOVI)
  6. MEKTOVI [Suspect]
     Active Substance: BINIMETINIB
     Dosage: 1 DF, 1X/DAY (LAST COUPLE OF NIGHTS I TOOK 2 BRAFTOVI AND 1 MEKTOVI)
     Dates: start: 2022

REACTIONS (10)
  - Haematemesis [Unknown]
  - Off label use [Unknown]
  - Intentional underdose [Unknown]
  - Heart valve calcification [Unknown]
  - Illness [Unknown]
  - Feeling abnormal [Unknown]
  - Headache [Unknown]
  - Fatigue [Unknown]
  - Neoplasm progression [Unknown]
  - Disturbance in attention [Not Recovered/Not Resolved]
